FAERS Safety Report 5614593-X (Version None)
Quarter: 2008Q1

REPORT INFORMATION
  Report Type: 
  Country: None (occurrence: None)
  Receive Date: 20080205
  Receipt Date: 20060525
  Transmission Date: 20080703
  Serious: Yes (Hospitalization)
  Sender: FDA-Public Use
  Company Number: CA-GENENTECH-224983

PATIENT
  Sex: Female
  Weight: 47 kg

DRUGS (3)
  1. BEVACIZUMAB [Suspect]
     Indication: COLORECTAL CANCER
     Dosage: 345 MG, Q3W
     Route: 042
     Dates: start: 20060411, end: 20060520
  2. CAPECITABINE [Suspect]
     Indication: COLORECTAL CANCER
     Dosage: 1300 MG, BID
     Route: 048
     Dates: start: 20060228, end: 20060520
  3. OXALIPLATIN [Suspect]
     Indication: COLORECTAL CANCER
     Dosage: 182 MG, Q3W
     Route: 042
     Dates: start: 20060401, end: 20060520

REACTIONS (1)
  - FEBRILE INFECTION [None]
